FAERS Safety Report 6845663-6 (Version None)
Quarter: 2010Q3

REPORT INFORMATION
  Report Type: 
  Country: None (occurrence: None)
  Receive Date: 20100715
  Receipt Date: 20070822
  Transmission Date: 20110219
  Serious: No
  Sender: FDA-Public Use
  Company Number: US-PFIZER INC-2007072074

PATIENT
  Sex: Male
  Weight: 103.6 kg

DRUGS (10)
  1. CHANTIX [Suspect]
     Indication: SMOKING CESSATION THERAPY
     Dates: start: 20070820
  2. NIFEDIPINE [Concomitant]
  3. HYDROCHLOROTHIAZIDE [Concomitant]
  4. VALSARTAN [Concomitant]
  5. NADOLOL [Concomitant]
  6. ACETYLSALICYLIC ACID [Concomitant]
  7. METFORMIN HCL [Concomitant]
  8. LIPITOR [Concomitant]
  9. NEXIUM [Concomitant]
  10. FAMOTIDINE [Concomitant]

REACTIONS (1)
  - ABDOMINAL PAIN [None]
